FAERS Safety Report 6779577-7 (Version None)
Quarter: 2010Q2

REPORT INFORMATION
  Report Type: 
  Country: None (occurrence: None)
  Receive Date: 20100618
  Receipt Date: 20100616
  Transmission Date: 20101027
  Serious: Yes (Hospitalization)
  Sender: FDA-Public Use
  Company Number: A0864063A

PATIENT
  Age: 58 Year
  Sex: Female
  Weight: 50.9 kg

DRUGS (5)
  1. TOPOTECAN [Suspect]
     Indication: GLIOBLASTOMA
     Route: 042
     Dates: start: 20100505
  2. AVASTIN [Suspect]
     Indication: GLIOBLASTOMA
     Dosage: 509MG EVERY TWO WEEKS
     Route: 042
     Dates: start: 20100222
  3. TEMODAR [Suspect]
     Indication: GLIOBLASTOMA
     Route: 048
     Dates: start: 20100222
  4. RADIATION [Suspect]
     Indication: GLIOBLASTOMA
     Dates: start: 20100222
  5. HYDROCORTISONE [Concomitant]
     Route: 048

REACTIONS (3)
  - PANCYTOPENIA [None]
  - PNEUMONITIS [None]
  - RESPIRATORY FAILURE [None]
